FAERS Safety Report 8072102-2 (Version None)
Quarter: 2012Q1

REPORT INFORMATION
  Report Type: 
  Country: None (occurrence: None)
  Receive Date: 20120126
  Receipt Date: 20120119
  Transmission Date: 20120608
  Serious: Yes (Other)
  Sender: FDA-Public Use
  Company Number: CA-CELGENEUS-028-20785-12012044

PATIENT
  Age: 58 Year
  Sex: Male

DRUGS (6)
  1. THALOMID [Suspect]
     Route: 048
  2. CYCLOPHOSPHAMIDE [Suspect]
     Route: 065
  3. MELPHALAN HYDROCHLORIDE [Suspect]
     Route: 065
  4. PAMIDRONATE DISODIUM [Suspect]
     Route: 065
  5. DEXAMETHASONE TAB [Suspect]
     Route: 065
  6. NEUPOGEN [Suspect]
     Route: 065

REACTIONS (9)
  - IIIRD NERVE PARALYSIS [None]
  - VIITH NERVE PARALYSIS [None]
  - DEPRESSED MOOD [None]
  - CONCOMITANT DISEASE AGGRAVATED [None]
  - RADIATION NECROSIS [None]
  - FACIAL NERVE DISORDER [None]
  - FATIGUE [None]
  - NAUSEA [None]
  - LETHARGY [None]
